FAERS Safety Report 9200522 (Version 1)
Quarter: 2013Q1

REPORT INFORMATION
  Report Type: Spontaneous
  Country: FR (occurrence: FR)
  Receive Date: 20130329
  Receipt Date: 20130329
  Transmission Date: 20140127
  Serious: Yes (Hospitalization)
  Sender: FDA-Public Use
  Company Number: FR-ELI_LILLY_AND_COMPANY-FR201303006683

PATIENT
  Age: 62 Year
  Sex: Male

DRUGS (4)
  1. FORSTEO [Suspect]
     Indication: OSTEOPOROSIS
     Dosage: 20 UG, QD
     Route: 058
     Dates: start: 20130220
  2. GAMMANORM [Concomitant]
     Dosage: UNK, WEEKLY (1/W)
  3. CORTANCYL [Concomitant]
  4. BACTRIM [Concomitant]

REACTIONS (1)
  - Pneumonia pseudomonas aeruginosa [Not Recovered/Not Resolved]
